FAERS Safety Report 9129552 (Version 1)
Quarter: 2013Q1

REPORT INFORMATION
  Report Type: Spontaneous
  Country: CA (occurrence: CA)
  Receive Date: 20130228
  Receipt Date: 20130228
  Transmission Date: 20140127
  Serious: Yes (Other)
  Sender: FDA-Public Use
  Company Number: CA-ELI_LILLY_AND_COMPANY-CA201302006311

PATIENT
  Age: 42 Year
  Sex: Male

DRUGS (1)
  1. CYMBALTA [Suspect]
     Indication: DEPRESSION
     Dosage: 60 MG, UNK

REACTIONS (6)
  - Suicidal ideation [Unknown]
  - Sexual dysfunction [Unknown]
  - Orgasm abnormal [Unknown]
  - Drug withdrawal syndrome [Unknown]
  - Malaise [Unknown]
  - Depressed mood [Unknown]
